FAERS Safety Report 20750750 (Version 4)
Quarter: 2023Q2

REPORT INFORMATION
  Report Type: Spontaneous
  Country: US (occurrence: US)
  Receive Date: 20220426
  Receipt Date: 20230508
  Transmission Date: 20230722
  Serious: Yes (Other)
  Sender: FDA-Public Use
  Company Number: US-PFIZER INC-202101110332

PATIENT
  Age: 73 Year
  Sex: Female
  Weight: 86.18 kg

DRUGS (3)
  1. PREMARIN [Suspect]
     Active Substance: ESTROGENS, CONJUGATED
     Dosage: UNK, [PEA-SIZED AMOUNT ON FINGERTIP 3 X PER WEEK]
     Route: 067
  2. BASAGLAR [Concomitant]
     Active Substance: INSULIN GLARGINE
     Indication: Diabetes mellitus
     Dosage: UNK
  3. TRULICITY [Concomitant]
     Active Substance: DULAGLUTIDE
     Indication: Diabetes mellitus
     Dosage: UNK

REACTIONS (7)
  - Cardiac disorder [Unknown]
  - Renal disorder [Unknown]
  - Asthma [Unknown]
  - Memory impairment [Unknown]
  - Weight decreased [Unknown]
  - Off label use [Unknown]
  - Wrong technique in product usage process [Unknown]
